FAERS Safety Report 11250754 (Version 1)
Quarter: 2015Q3

REPORT INFORMATION
  Report Type: Spontaneous
  Country: US (occurrence: US)
  Receive Date: 20150708
  Receipt Date: 20150708
  Transmission Date: 20151125
  Serious: No
  Sender: FDA-Public Use
  Company Number: US-ELI_LILLY_AND_COMPANY-US201104000342

PATIENT
  Sex: Female

DRUGS (2)
  1. GEMZAR [Suspect]
     Active Substance: GEMCITABINE HYDROCHLORIDE
  2. TAXOTERE [Concomitant]
     Active Substance: DOCETAXEL

REACTIONS (4)
  - Pain [Unknown]
  - Neuropathy peripheral [Unknown]
  - Discomfort [Unknown]
  - Erythema [Unknown]
